FAERS Safety Report 13626042 (Version 1)
Quarter: 2017Q2

REPORT INFORMATION
  Report Type: Spontaneous
  Country: JP (occurrence: JP)
  Receive Date: 20170608
  Receipt Date: 20170608
  Transmission Date: 20170830
  Serious: Yes (Hospitalization)
  Sender: FDA-Public Use
  Company Number: JP-MYLANLABS-2017M1034336

PATIENT

DRUGS (6)
  1. BIPERIDEN [Concomitant]
     Active Substance: BIPERIDEN
     Indication: SCHIZOPHRENIA
     Dosage: 3 MG/DAY
     Route: 065
  2. RISPERIDONE. [Suspect]
     Active Substance: RISPERIDONE
     Indication: SCHIZOPHRENIA
     Dosage: 7 MG/DAY
     Route: 065
  3. HALOPERIDOL. [Suspect]
     Active Substance: HALOPERIDOL
     Indication: PRODUCT USED FOR UNKNOWN INDICATION
     Dosage: IN A 500ML FLUID REPLACEMENT ADMINISTERED OVER 6 HOURS
     Route: 041
  4. DIAZEPAM. [Suspect]
     Active Substance: DIAZEPAM
     Indication: SCHIZOPHRENIA
     Dosage: 6 MG/DAY
     Route: 065
  5. BROTIZOLAM [Suspect]
     Active Substance: BROTIZOLAM
     Indication: SCHIZOPHRENIA
     Dosage: 6 MG/DAY
     Route: 065
  6. CHLORPROMAZINE. [Suspect]
     Active Substance: CHLORPROMAZINE
     Indication: SCHIZOPHRENIA
     Dosage: 75 MG/DAY
     Route: 065

REACTIONS (2)
  - Catatonia [Recovered/Resolved]
  - Withdrawal syndrome [Recovered/Resolved]
